FAERS Safety Report 18797606 (Version 1)
Quarter: 2021Q1

REPORT INFORMATION
  Report Type: Spontaneous
  Country: IT (occurrence: IT)
  Receive Date: 20210128
  Receipt Date: 20210128
  Transmission Date: 20210419
  Serious: Yes (Other)
  Sender: FDA-Public Use
  Company Number: IT-SUN PHARMACEUTICAL INDUSTRIES LTD-2021RR-277750

PATIENT
  Age: 70 Year
  Sex: Female
  Weight: 143 kg

DRUGS (6)
  1. ALOXI 250 MICROGRAMS SOLUTION FOR INJECTION [Concomitant]
     Indication: PREMEDICATION
     Dosage: UNK
     Route: 042
     Dates: start: 20201126, end: 20201126
  2. CAPECITABINE. [Concomitant]
     Active Substance: CAPECITABINE
     Indication: ADENOCARCINOMA OF COLON
     Dosage: 2000 MILLIGRAM
     Route: 048
     Dates: start: 20200813, end: 20201221
  3. PANTOPRAZOLE [Concomitant]
     Active Substance: PANTOPRAZOLE
     Indication: PREMEDICATION
     Dosage: 40 MILLIGRAM, UNK
     Route: 042
     Dates: start: 20201126, end: 20201126
  4. TRIMETON [Concomitant]
     Active Substance: CHLORPHENIRAMINE MALEATE
     Indication: PREMEDICATION
     Dosage: 10 MILLIGRAM, UNK
     Route: 065
     Dates: start: 20201126, end: 20201126
  5. OXALIPLATINO SUN 5 MG/ML, CONCENTRATO PER SOLUZIONE PER INFUSIONE [Suspect]
     Active Substance: OXALIPLATIN
     Indication: ADENOCARCINOMA OF COLON
     Dosage: CYCLICAL
     Route: 042
     Dates: start: 20200813, end: 20201126
  6. SOLDESAM [Concomitant]
     Active Substance: DEXAMETHASONE
     Indication: PREMEDICATION
     Dosage: 8 MILLIGRAM, UNK
     Route: 065
     Dates: start: 20201126, end: 20201126

REACTIONS (3)
  - Rash [Recovered/Resolved]
  - Burning sensation [Recovered/Resolved]
  - Pruritus [Recovered/Resolved]

NARRATIVE: CASE EVENT DATE: 20201126
